FAERS Safety Report 24036551 (Version 3)
Quarter: 2024Q3

REPORT INFORMATION
  Report Type: Spontaneous
  Country: FR (occurrence: FR)
  Receive Date: 20240701
  Receipt Date: 20240717
  Transmission Date: 20241017
  Serious: Yes (Other)
  Sender: MYLAN
  Company Number: FR-ETHYPHARM-2024001113

PATIENT
  Sex: Female

DRUGS (12)
  1. BUPRENORPHINE [Suspect]
     Active Substance: BUPRENORPHINE
     Indication: Product used for unknown indication
     Dosage: 2 MILLIGRAM (ONLY BUPRENORPHINE OR MIX WITH OROBUPRE)
     Route: 060
  2. BUPRENORPHINE [Suspect]
     Active Substance: BUPRENORPHINE
     Dosage: 4 MILLIGRAM (ONLY BUPRENORPHINE OR MIX WITH OROBUPRE)
     Route: 060
  3. BUPRENORPHINE [Suspect]
     Active Substance: BUPRENORPHINE
     Dosage: 10 MILLIGRAM (ONLY BUPRENORPHINE OR MIX WITH OROBUPRE)
     Route: 060
  4. BUPRENORPHINE [Suspect]
     Active Substance: BUPRENORPHINE
     Dosage: 18 MILLIGRAM (ONLY BUPRENORPHINE OR MIX WITH OROBUPRE)
     Route: 060
  5. BUPRENORPHINE [Suspect]
     Active Substance: BUPRENORPHINE
     Dosage: 22 MILLIGRAM (ONLY BUPRENORPHINE OR MIX WITH OROBUPRE)
     Route: 060
  6. BUPRENORPHINE [Suspect]
     Active Substance: BUPRENORPHINE
     Dosage: 0.5 MILLIGRAM
     Route: 065
  7. BUPRENORPHINE HYDROCHLORIDE [Suspect]
     Active Substance: BUPRENORPHINE HYDROCHLORIDE
     Indication: Product used for unknown indication
     Dosage: 2 MILLIGRAM (ONLY OROBUPRE OR MIX WITH BUPRENORPHINE)
     Route: 048
  8. BUPRENORPHINE HYDROCHLORIDE [Suspect]
     Active Substance: BUPRENORPHINE HYDROCHLORIDE
     Dosage: 4 MILLIGRAM (ONLY OROBUPRE OR MIX WITH BUPRENORPHINE)
     Route: 048
  9. BUPRENORPHINE HYDROCHLORIDE [Suspect]
     Active Substance: BUPRENORPHINE HYDROCHLORIDE
     Dosage: 10 MILLIGRAM (ONLY OROBUPRE OR MIX WITH BUPRENORPHINE)
     Route: 048
  10. BUPRENORPHINE HYDROCHLORIDE [Suspect]
     Active Substance: BUPRENORPHINE HYDROCHLORIDE
     Dosage: 18 MILLIGRAM (ONLY OROBUPRE OR MIX WITH BUPRENORPHINE)
     Route: 048
  11. BUPRENORPHINE HYDROCHLORIDE [Suspect]
     Active Substance: BUPRENORPHINE HYDROCHLORIDE
     Dosage: 22 MILLIGRAM (ONLY OROBUPRE OR MIX WITH BUPRENORPHINE)
     Route: 048
  12. LAMICTAL [Concomitant]
     Active Substance: LAMOTRIGINE
     Indication: Product used for unknown indication
     Dosage: 200 MILLIGRAM
     Route: 065

REACTIONS (7)
  - Drug abuse [Unknown]
  - Intentional product misuse [Unknown]
  - Drug dependence [Unknown]
  - Feeling of relaxation [Unknown]
  - Drug tolerance [Unknown]
  - Depression [Unknown]
  - Product administration interrupted [Unknown]
